FAERS Safety Report 13839210 (Version 1)
Quarter: 2017Q3

REPORT INFORMATION
  Report Type: Spontaneous
  Country: ES (occurrence: ES)
  Receive Date: 20170807
  Receipt Date: 20170807
  Transmission Date: 20171127
  Serious: Yes (Other)
  Sender: FDA-Public Use
  Company Number: ES-ASTELLAS-2017US030686

PATIENT
  Sex: Male

DRUGS (2)
  1. BETMIGA [Suspect]
     Active Substance: MIRABEGRON
     Indication: PROSTATIC DISORDER
     Route: 048
     Dates: start: 20170727, end: 20170727
  2. CANDESARTAN. [Concomitant]
     Active Substance: CANDESARTAN
     Indication: HYPERTENSION
     Dosage: 16 MG, ONCE DAILY (STARTED ABOUT 5 TO 6 YEARS AGO)
     Route: 048

REACTIONS (5)
  - Blood creatinine increased [Unknown]
  - Off label use [Unknown]
  - Microalbuminuria [Unknown]
  - Hypertension [Recovered/Resolved]
  - Hypotonia [Recovered/Resolved]

NARRATIVE: CASE EVENT DATE: 20170727
